FAERS Safety Report 4334888-X (Version None)
Quarter: 2004Q2

REPORT INFORMATION
  Report Type: 
  Country: None (occurrence: None)
  Receive Date: 20040405
  Receipt Date: 20040323
  Transmission Date: 20050107
  Serious: Yes (Hospitalization)
  Sender: FDA-Public Use
  Company Number: UK031838

PATIENT
  Age: 50 Year
  Sex: Male
  Weight: 73 kg

DRUGS (8)
  1. NEUPOGEN [Suspect]
     Indication: DRUG USE FOR UNKNOWN INDICATION
     Dosage: 10 MCG/KG, 2 IN 1 DAYS, SC
     Route: 058
     Dates: start: 20030221, end: 20030223
  2. ASPIRIN [Concomitant]
  3. CLOPIDOGREL [Concomitant]
  4. METOPROLOL [Concomitant]
  5. RAMIPRIL [Concomitant]
  6. SIMVASTATIN [Concomitant]
  7. PANTOPRAZOLE [Concomitant]
  8. HEPARIN-FRACTION, CALCIUM SALT [Concomitant]

REACTIONS (5)
  - BONE PAIN [None]
  - MALAISE [None]
  - MYALGIA [None]
  - STENT OCCLUSION [None]
  - TOOTHACHE [None]
